FAERS Safety Report 7093840-4 (Version None)
Quarter: 2010Q4

REPORT INFORMATION
  Report Type: 
  Country: None (occurrence: None)
  Receive Date: 20101110
  Receipt Date: 20101104
  Transmission Date: 20110411
  Serious: Yes (Other)
  Sender: FDA-Public Use
  Company Number: A0881471A

PATIENT
  Age: 61 Year
  Sex: Male

DRUGS (9)
  1. PROMACTA [Suspect]
     Indication: IDIOPATHIC THROMBOCYTOPENIC PURPURA
     Dosage: 75MG PER DAY
     Route: 048
     Dates: start: 20100430, end: 20100611
  2. CORTICOSTEROIDS [Concomitant]
     Dates: start: 20100311
  3. RITUXIMAB [Concomitant]
     Dates: start: 20100311, end: 20100416
  4. ALTACE [Concomitant]
  5. XANAX [Concomitant]
  6. TOPAMAX [Concomitant]
  7. METFORMIN HCL [Concomitant]
  8. TENORMIN [Concomitant]
  9. OXYCODONE HCL [Concomitant]

REACTIONS (4)
  - ALANINE AMINOTRANSFERASE INCREASED [None]
  - ASPARTATE AMINOTRANSFERASE INCREASED [None]
  - DRUG INEFFECTIVE [None]
  - SPLENECTOMY [None]
